FAERS Safety Report 15015491 (Version 1)
Quarter: 2018Q2

REPORT INFORMATION
  Report Type: Spontaneous
  Country: IT (occurrence: IT)
  Receive Date: 20180615
  Receipt Date: 20180615
  Transmission Date: 20180711
  Serious: Yes (Other)
  Sender: FDA-Public Use
  Company Number: IT-LPDUSPRD-20181034

PATIENT
  Age: 50 Year
  Sex: Female
  Weight: 90 kg

DRUGS (1)
  1. FERINJECT [Suspect]
     Active Substance: FERRIC CARBOXYMALTOSE
     Dosage: 1000 MG, 1 AS REQUIRED
     Route: 041
     Dates: start: 20180525, end: 20180525

REACTIONS (1)
  - Laryngospasm [Unknown]

NARRATIVE: CASE EVENT DATE: 20180525
